FAERS Safety Report 11004180 (Version 2)
Quarter: 2015Q2

REPORT INFORMATION
  Report Type: Spontaneous
  Country: US (occurrence: US)
  Receive Date: 20150409
  Receipt Date: 20150624
  Transmission Date: 20150821
  Serious: Yes (Hospitalization, Other)
  Sender: FDA-Public Use
  Company Number: US-SUN PHARMACEUTICAL INDUSTRIES LTD-2015US-94971

PATIENT
  Age: 47 Year
  Sex: Male
  Weight: 72.11 kg

DRUGS (1)
  1. TRAMADOL [Suspect]
     Active Substance: TRAMADOL
     Indication: BACK PAIN
     Dosage: 50 MG, BID
     Route: 048
     Dates: start: 201412, end: 20150325

REACTIONS (6)
  - Seizure [Unknown]
  - Weight decreased [Unknown]
  - Hallucination, visual [Unknown]
  - Loss of consciousness [Unknown]
  - Hypertension [Unknown]
  - Alopecia [Unknown]

NARRATIVE: CASE EVENT DATE: 201412
